FAERS Safety Report 5202335-1 (Version None)
Quarter: 2007Q1

REPORT INFORMATION
  Report Type: 
  Country: None (occurrence: None)
  Receive Date: 20070109
  Receipt Date: 20070102
  Transmission Date: 20070707
  Serious: No
  Sender: FDA-Public Use
  Company Number: US-BAXTER-2006BH005590

PATIENT

DRUGS (3)
  1. LIDOCAINE HCL IN 5% DEXTROSE INJECTION IN PLASTIC CONTAINER [Suspect]
     Indication: ACUTE MYOCARDIAL INFARCTION
     Route: 040
  2. LIDOCAINE HCL IN 5% DEXTROSE INJECTION IN PLASTIC CONTAINER [Suspect]
     Route: 040
  3. LIDOCAINE HCL IN 5% DEXTROSE INJECTION IN PLASTIC CONTAINER [Suspect]
     Route: 040

REACTIONS (3)
  - CONVULSION [None]
  - DRUG TOXICITY [None]
  - UNRESPONSIVE TO STIMULI [None]
